FAERS Safety Report 5776744-6 (Version None)
Quarter: 2008Q2

REPORT INFORMATION
  Report Type: 
  Country: None (occurrence: None)
  Receive Date: 20080618
  Receipt Date: 20080320
  Transmission Date: 20081010
  Serious: No
  Sender: FDA-Public Use
  Company Number: US-ASTRAZENECA-2008UW05752

PATIENT
  Sex: Female

DRUGS (3)
  1. SYMBICORT [Suspect]
     Dosage: 160/4.5 MCG
     Route: 055
  2. QVAR 40 [Concomitant]
  3. ALBUTEROL [Concomitant]

REACTIONS (2)
  - DYSPNOEA [None]
  - PANIC ATTACK [None]
